FAERS Safety Report 4511746-9 (Version None)
Quarter: 2004Q4

REPORT INFORMATION
  Report Type: 
  Country: None (occurrence: None)
  Receive Date: 20041122
  Receipt Date: 20041109
  Transmission Date: 20050328
  Serious: Yes (Death, Other)
  Sender: FDA-Public Use
  Company Number: 2004081597

PATIENT
  Sex: Male

DRUGS (5)
  1. ZOLOFT [Suspect]
     Indication: DEPRESSION
     Dosage: 100 MG (1 IN 1 D)
     Dates: end: 20030302
  2. ANALGESICS (ANALGESICS) [Suspect]
     Indication: ILL-DEFINED DISORDER
     Dates: end: 20030302
  3. VICODIN [Suspect]
     Indication: ILL-DEFINED DISORDER
     Dates: end: 20030302
  4. BENZODIAZEPINE DERIVATIVES (BENZODIAZEPINE DERIVATIVES) [Suspect]
     Indication: ILL-DEFINED DISORDER
     Dates: end: 20030302
  5. PROMETHAZINE HYDROCHLORIDE TAB [Suspect]
     Indication: ILL-DEFINED DISORDER
     Dates: end: 20030302

REACTIONS (5)
  - ABNORMAL BEHAVIOUR [None]
  - ACCIDENT AT WORK [None]
  - BACK INJURY [None]
  - MENTAL DISORDER [None]
  - MULTIPLE DRUG OVERDOSE [None]
